FAERS Safety Report 10365639 (Version 1)
Quarter: 2014Q3

REPORT INFORMATION
  Report Type: Spontaneous
  Country: FR (occurrence: FR)
  Receive Date: 20140806
  Receipt Date: 20140806
  Transmission Date: 20150326
  Serious: Yes (Hospitalization)
  Sender: FDA-Public Use
  Company Number: FR-TEVA-499042ISR

PATIENT
  Age: 51 Year
  Sex: Male

DRUGS (4)
  1. FERINJECT [Concomitant]
     Active Substance: FERRIC CARBOXYMALTOSE
  2. OXALIPLATINE TEVA 5 MG/ML [Suspect]
     Active Substance: OXALIPLATIN
     Dosage: FOLFOX CHEMOTHERAPY PROTOCOL WITH TWO COURSES IN MAY 2014 AND ONE COURSE IN JUNE 2014
     Route: 041
     Dates: start: 20140501, end: 20140606
  3. ELVORINE [Suspect]
     Active Substance: LEUCOVORIN CALCIUM
     Dosage: FOLFOX CHEMOTHERAPY PROTOCOL WITH TWO COURSES IN MAY 2014 AND ONE COURSE IN JUNE 2014
     Route: 041
  4. FLUOROURACILE PFIZER 50 MG/ML [Suspect]
     Active Substance: FLUOROURACIL
     Dosage: FOLFOX CHEMOTHERAPY PROTOCOL WITH TWO COURSES IN MAY 2014 AND ONE COURSE IN JUNE 2014
     Route: 041

REACTIONS (2)
  - Cholestasis [Recovered/Resolved]
  - Hepatocellular injury [Recovered/Resolved]

NARRATIVE: CASE EVENT DATE: 201406
